FAERS Safety Report 24129301 (Version 1)
Quarter: 2024Q3

REPORT INFORMATION
  Report Type: Report from Study
  Country: BE (occurrence: BE)
  Receive Date: 20240723
  Receipt Date: 20240723
  Transmission Date: 20241016
  Serious: Yes (Hospitalization, Other)
  Sender: APELLIS PHARMACEUTICALS
  Company Number: BE-BIOVITRUM-2024-BE-001224

PATIENT

DRUGS (1)
  1. PEGCETACOPLAN [Suspect]
     Active Substance: PEGCETACOPLAN
     Indication: Paroxysmal nocturnal haemoglobinuria
     Dosage: ASPAVELI 1080MG/20ML, 2.00 X PER WEEK
     Route: 058

REACTIONS (2)
  - Renal impairment [Unknown]
  - Pneumonia [Not Recovered/Not Resolved]
